FAERS Safety Report 17792402 (Version 1)
Quarter: 2020Q2

REPORT INFORMATION
  Report Type: Spontaneous
  Country: JP (occurrence: JP)
  Receive Date: 20200515
  Receipt Date: 20200515
  Transmission Date: 20200714
  Serious: Yes (Other)
  Sender: FDA-Public Use
  Company Number: JP-TEVA-2020-JP-1236657

PATIENT
  Age: 5 Year
  Sex: Male

DRUGS (1)
  1. CLARITHROMYCIN. [Suspect]
     Active Substance: CLARITHROMYCIN
     Indication: OTITIS MEDIA
     Dosage: 5 MG/KG DAILY;
     Route: 048

REACTIONS (2)
  - Clostridium difficile infection [Recovered/Resolved]
  - Community acquired infection [Recovered/Resolved]
